FAERS Safety Report 6770848-7 (Version None)
Quarter: 2010Q2

REPORT INFORMATION
  Report Type: 
  Country: None (occurrence: None)
  Receive Date: 20100614
  Receipt Date: 20100614
  Transmission Date: 20101027
  Serious: No
  Sender: FDA-Public Use
  Company Number: None

PATIENT
  Sex: Female
  Weight: 40.9 kg

DRUGS (3)
  1. FLUOROURACIL [Suspect]
     Dosage: 1088 MG
  2. CISPLATIN [Suspect]
     Dosage: 109 MG
  3. ERBITUX [Suspect]
     Dosage: 1430 MG

REACTIONS (1)
  - LYMPHOPENIA [None]
